FAERS Safety Report 8334234-0 (Version None)
Quarter: 2012Q2

REPORT INFORMATION
  Report Type: 
  Country: None (occurrence: None)
  Receive Date: 20120503
  Receipt Date: 20120425
  Transmission Date: 20120825
  Serious: Yes (Hospitalization)
  Sender: FDA-Public Use
  Company Number: GB-VIIV HEALTHCARE LIMITED-B0798164A

PATIENT
  Age: 61 Year
  Sex: Male

DRUGS (3)
  1. NORVIR [Suspect]
     Indication: HIV INFECTION
     Dosage: 100MG PER DAY
     Route: 048
  2. REYATAZ [Suspect]
     Indication: HIV INFECTION
     Dosage: 300MG PER DAY
     Route: 048
  3. MARAVIROC [Suspect]
     Indication: HIV TROPISM TEST
     Dosage: 300MG PER DAY
     Route: 048

REACTIONS (2)
  - DRUG INTERACTION [None]
  - ADVERSE EVENT [None]
